FAERS Safety Report 17475610 (Version 9)
Quarter: 2023Q4

REPORT INFORMATION
  Report Type: Spontaneous
  Country: US (occurrence: US)
  Receive Date: 20200228
  Receipt Date: 20231130
  Transmission Date: 20240110
  Serious: No
  Sender: FDA-Public Use
  Company Number: US-PFIZER INC-2020089760

PATIENT
  Age: 66 Year
  Sex: Female
  Weight: 56.236 kg

DRUGS (1)
  1. XELJANZ [Suspect]
     Active Substance: TOFACITINIB CITRATE
     Indication: Rheumatoid arthritis
     Dosage: 5 MG, 2X/DAY

REACTIONS (12)
  - Spinal stenosis [Unknown]
  - Feeling abnormal [Unknown]
  - Sciatica [Unknown]
  - Osteoporosis [Unknown]
  - Acne [Unknown]
  - Pruritus [Unknown]
  - COVID-19 [Unknown]
  - Malaise [Unknown]
  - Memory impairment [Not Recovered/Not Resolved]
  - Pain [Unknown]
  - Bone pain [Unknown]
  - Pruritus allergic [Not Recovered/Not Resolved]

NARRATIVE: CASE EVENT DATE: 20230101
